FAERS Safety Report 9195799 (Version 3)
Quarter: 2013Q2

REPORT INFORMATION
  Report Type: Spontaneous
  Country: US (occurrence: None)
  Receive Date: 20130319
  Receipt Date: 20130522
  Transmission Date: 20140414
  Serious: Yes (Other)
  Sender: FDA-Public Use
  Company Number: 2013035004

PATIENT
  Sex: Female

DRUGS (14)
  1. HIZENTRA (IMMUNOGLOBULIN HUMAN NORMAL) [Suspect]
     Indication: HYPOGAMMAGLOBULINAEMIA
     Dosage: 15 G, IN 5 SITES SUBCUTANEOUS
     Route: 058
     Dates: start: 20121206, end: 20121206
  2. THEO-24 ER (THEOPHYLLINE) [Concomitant]
  3. METFORMIN [Concomitant]
  4. GLIPIZIDE XL [Concomitant]
  5. PERINDOPRIL ERBUMINE [Concomitant]
  6. FERROUS SULFATE [Concomitant]
  7. D3 (COLECALCIFEROL) [Concomitant]
  8. B-12 (CYANOCOBALAMIN) [Concomitant]
  9. CETIRIZINE [Concomitant]
  10. GLUCOSAMINE [Concomitant]
  11. CHONDROITIN [Concomitant]
  12. CARISOPRODOL [Concomitant]
  13. MELOXICAM [Concomitant]
  14. PREDNISONE TAPER [Concomitant]

REACTIONS (2)
  - Hepatitis B core antibody positive [None]
  - Suspected transmission of an infectious agent via product [None]
